FAERS Safety Report 19578202 (Version 3)
Quarter: 2021Q3

REPORT INFORMATION
  Report Type: Spontaneous
  Country: DE (occurrence: CN)
  Receive Date: 20210719
  Receipt Date: 20210831
  Transmission Date: 20211014
  Serious: Yes (Hospitalization)
  Sender: FDA-Public Use
  Company Number: CN-ELI_LILLY_AND_COMPANY-CN202107006312

PATIENT
  Age: 48 Year
  Sex: Male
  Weight: 66 kg

DRUGS (8)
  1. ERBITUX [Suspect]
     Active Substance: CETUXIMAB
     Indication: COLORECTAL CANCER METASTATIC
     Dosage: 732 MG, UNK
     Route: 041
     Dates: start: 20210525
  2. ERBITUX [Suspect]
     Active Substance: CETUXIMAB
     Dosage: 458 MG, UNK
     Route: 041
     Dates: start: 20210616, end: 20210616
  3. OXALIPLATIN. [Suspect]
     Active Substance: OXALIPLATIN
     Indication: COLORECTAL CANCER METASTATIC
     Dosage: 156 MG, UNK
     Route: 041
     Dates: start: 20210525
  4. ERBITUX [Suspect]
     Active Substance: CETUXIMAB
     Dosage: 458 MG, UNK
     Route: 041
     Dates: start: 20210629
  5. FLUOROURACIL. [Suspect]
     Active Substance: FLUOROURACIL
     Indication: COLORECTAL CANCER METASTATIC
     Dosage: 732 MG, UNK
     Route: 042
     Dates: start: 20210525, end: 20210608
  6. FOLINATE CALCIUM [Suspect]
     Active Substance: LEUCOVORIN CALCIUM
     Indication: COLORECTAL CANCER METASTATIC
     Dosage: 732 MG, UNK
     Route: 041
     Dates: start: 20210525
  7. FLUOROURACIL. [Suspect]
     Active Substance: FLUOROURACIL
     Dosage: 549 MG, UNK
     Route: 042
     Dates: start: 20210629
  8. LORATADINE. [Concomitant]
     Active Substance: LORATADINE
     Indication: RASH
     Dosage: 10 MG, DAILY
     Route: 048
     Dates: start: 20210608

REACTIONS (6)
  - Blood bilirubin increased [Recovered/Resolved]
  - Alanine aminotransferase increased [Recovered/Resolved]
  - Gastritis [Unknown]
  - Bilirubin conjugated increased [Recovered/Resolved]
  - Aspartate aminotransferase increased [Recovered/Resolved]
  - Gamma-glutamyltransferase increased [Recovered/Resolved]

NARRATIVE: CASE EVENT DATE: 20210622
